FAERS Safety Report 17706148 (Version 2)
Quarter: 2020Q2

REPORT INFORMATION
  Report Type: Spontaneous
  Country: US (occurrence: US)
  Receive Date: 20200424
  Receipt Date: 20200429
  Transmission Date: 20200714
  Serious: Yes (Death, Life-Threatening)
  Sender: FDA-Public Use
  Company Number: US-AMERICAN REGENT INC-2020000945

PATIENT
  Age: 84 Year
  Sex: Female

DRUGS (4)
  1. INJECTAFER [Suspect]
     Active Substance: FERRIC CARBOXYMALTOSE
     Indication: ANAEMIA
     Dosage: 750 MILLIGRAM
     Route: 042
     Dates: start: 201905, end: 201905
  2. INJECTAFER [Suspect]
     Active Substance: FERRIC CARBOXYMALTOSE
     Indication: CHRONIC KIDNEY DISEASE
     Dosage: 750 MILLIGRAM
     Route: 042
     Dates: start: 201906, end: 201906
  3. INJECTAFER [Suspect]
     Active Substance: FERRIC CARBOXYMALTOSE
     Dosage: 750 MILLIGRAM
     Route: 042
  4. INJECTAFER [Suspect]
     Active Substance: FERRIC CARBOXYMALTOSE
     Dosage: 750 MILLIGRAM
     Route: 042
     Dates: start: 20200221, end: 20200221

REACTIONS (2)
  - Loss of consciousness [Not Recovered/Not Resolved]
  - Sudden cardiac death [Fatal]

NARRATIVE: CASE EVENT DATE: 20200221
